FAERS Safety Report 7650263-4 (Version None)
Quarter: 2011Q3

REPORT INFORMATION
  Report Type: 
  Country: None (occurrence: None)
  Receive Date: 20110802
  Receipt Date: 20110728
  Transmission Date: 20111222
  Serious: Yes (Other)
  Sender: FDA-Public Use
  Company Number: FR-ROCHE-793249

PATIENT
  Sex: Female

DRUGS (9)
  1. FUROSEMIDE [Concomitant]
     Dosage: DRUG REPORTED AS FUROSEMIDE 20
  2. LORAZEPAM [Concomitant]
  3. ROCEPHIN [Suspect]
     Route: 042
     Dates: start: 20100808
  4. OFLOXACIN [Suspect]
     Route: 048
     Dates: start: 20100808
  5. AMLODIPINE [Concomitant]
  6. LANTUS [Concomitant]
  7. ASPIRIN [Concomitant]
     Dosage: DRUG REPORTED AS KARDEGIC 75
  8. IRBESARTAN [Concomitant]
  9. ZOPICLONE [Concomitant]

REACTIONS (1)
  - HALLUCINATION, VISUAL [None]
